FAERS Safety Report 7057239 (Version 2)
Quarter: 2014Q3

REPORT INFORMATION
  Report Type: Spontaneous
  Country: US (occurrence: None)
  Receive Date: 20090713
  Receipt Date: 20140926
  Transmission Date: 20150326
  Serious: Yes (Hospitalization, Other)
  Sender: FDA-Public Use
  Company Number: 2009S1005349

PATIENT
  Age: 66 Year
  Sex: Male

DRUGS (4)
  1. PHOSPHO-SODA [Suspect]
     Active Substance: SODIUM PHOSPHATE, DIBASIC\SODIUM PHOSPHATE, MONOBASIC
     Indication: COLONOSCOPY
     Dosage: 2 IN 1 DAYS, ORAL
     Route: 048
     Dates: start: 20071001, end: 20071001
  2. LISINOPRIL (LISINOPRIL) [Concomitant]
     Active Substance: LISINOPRIL
  3. HYDROCHLOROTHIAZIDE (HYDROCHLOROTHIAZIDE) [Concomitant]
     Active Substance: HYDROCHLOROTHIAZIDE
  4. ASPIRIN (ACETYLSALICYLIC ACID) [Concomitant]
     Active Substance: ASPIRIN

REACTIONS (12)
  - Nephrogenic anaemia [None]
  - Nausea [None]
  - Hypogeusia [None]
  - Renal failure acute [None]
  - Diarrhoea [None]
  - Dehydration [None]
  - Hyperparathyroidism secondary [None]
  - Renal failure chronic [None]
  - Nephrocalcinosis [None]
  - Anaemia [None]
  - Abdominal discomfort [None]
  - Acute phosphate nephropathy [None]

NARRATIVE: CASE EVENT DATE: 20071115
